FAERS Safety Report 19651935 (Version 2)
Quarter: 2022Q2

REPORT INFORMATION
  Report Type: Report from Study
  Country: CA (occurrence: CA)
  Receive Date: 20210803
  Receipt Date: 20220526
  Transmission Date: 20220721
  Serious: Yes (Other)
  Sender: FDA-Public Use
  Company Number: CA-TAKEDA-2021TUS028485

PATIENT
  Age: 71 Year
  Sex: Female

DRUGS (2)
  1. HUMAN IMMUNOGLOBULIN G [Suspect]
     Active Substance: HUMAN IMMUNOGLOBULIN G
     Indication: Primary immunodeficiency syndrome
     Dosage: 50 GRAM, MONTHLY
     Route: 065
     Dates: start: 20210415
  2. HUMAN IMMUNOGLOBULIN G [Suspect]
     Active Substance: HUMAN IMMUNOGLOBULIN G
     Dosage: 12 GRAM, 1/WEEK
     Route: 058
     Dates: start: 20210415

REACTIONS (7)
  - Wrist fracture [Unknown]
  - Accident [Unknown]
  - Infusion site haemorrhage [Unknown]
  - Contusion [Recovered/Resolved]
  - Infusion site swelling [Recovered/Resolved]
  - Incorrect drug administration rate [Recovered/Resolved]
  - Product administration error [Unknown]

NARRATIVE: CASE EVENT DATE: 20210429
